FAERS Safety Report 13698726 (Version 5)
Quarter: 2018Q1

REPORT INFORMATION
  Report Type: Spontaneous
  Country: US (occurrence: US)
  Receive Date: 20170628
  Receipt Date: 20180307
  Transmission Date: 20180508
  Serious: Yes (Other)
  Sender: FDA-Public Use
  Company Number: US-PFIZER INC-2017274314

PATIENT
  Age: 86 Year
  Sex: Male
  Weight: 73.16 kg

DRUGS (7)
  1. XALKORI [Interacting]
     Active Substance: CRIZOTINIB
     Dosage: 200 MG, 2X/DAY
     Route: 048
  2. OMEPRAZOLE. [Concomitant]
     Active Substance: OMEPRAZOLE
     Indication: DYSPEPSIA
     Dosage: 20 MG, AS NEEDED (ONE AS NEEDED)
  3. POLY-IRON [Concomitant]
     Active Substance: IRON
     Indication: ANAEMIA
     Dosage: UNK (TAKES ONE IN THE MORING AND ONE IN THE EVENING)
  4. XALKORI [Suspect]
     Active Substance: CRIZOTINIB
     Indication: NON-SMALL CELL LUNG CANCER STAGE IV
     Dosage: 200 MG, 2X/DAY
     Route: 048
     Dates: start: 20170517
  5. ATENOLOL. [Concomitant]
     Active Substance: ATENOLOL
     Dosage: UNK
  6. HYDROCORTISONE. [Concomitant]
     Active Substance: HYDROCORTISONE
     Indication: PRURITUS
     Dosage: UNK
     Route: 061
  7. PROPANOLOL HCL [Interacting]
     Active Substance: PROPRANOLOL HYDROCHLORIDE
     Indication: TACHYCARDIA
     Dosage: 20 MG, 2X/DAY (ONE IN THE MORNING AND ONE AT NIGHT)
     Route: 048

REACTIONS (6)
  - Renal impairment [Unknown]
  - Drug interaction [Unknown]
  - Peripheral swelling [Recovered/Resolved]
  - Oedema peripheral [Unknown]
  - Constipation [Recovered/Resolved]
  - Heart rate decreased [Unknown]

NARRATIVE: CASE EVENT DATE: 201802
